FAERS Safety Report 23171643 (Version 1)
Quarter: 2023Q4

REPORT INFORMATION
  Report Type: Spontaneous
  Country: US (occurrence: None)
  Receive Date: 20231110
  Receipt Date: 20231110
  Transmission Date: 20240109
  Serious: Yes (Death)
  Sender: FDA-Public Use
  Company Number: US-FARMAPROD-202305-1444

PATIENT
  Age: 82 Year
  Sex: Male

DRUGS (23)
  1. OXERVATE [Suspect]
     Active Substance: CENEGERMIN-BKBJ
     Indication: Neurotrophic keratopathy
     Route: 047
     Dates: start: 20230508
  2. TERAZOSIN HYDROCHLORIDE [Concomitant]
     Active Substance: TERAZOSIN HYDROCHLORIDE
  3. PREDNISOLONE-BROMFENAC [Concomitant]
  4. MOXIFLOXACIN [Concomitant]
     Active Substance: MOXIFLOXACIN
  5. ELIQUIS [Concomitant]
     Active Substance: APIXABAN
  6. NITROGLYCERIN [Concomitant]
     Active Substance: NITROGLYCERIN
  7. CALCIUM CARBONATE [Concomitant]
     Active Substance: CALCIUM CARBONATE
  8. ASPIRIN [Concomitant]
     Active Substance: ASPIRIN
  9. DOXYCYCLINE HYCLATE [Concomitant]
     Active Substance: DOXYCYCLINE HYCLATE
  10. FLUTICASONE PROPIONATE [Concomitant]
     Active Substance: FLUTICASONE PROPIONATE
  11. ATROVENT HFA [Concomitant]
     Active Substance: IPRATROPIUM BROMIDE
     Dosage: HYDROFLUOROALKANE, AEROSOL WITH ADAPTER
  12. SPIRONOLACTONE [Concomitant]
     Active Substance: SPIRONOLACTONE
  13. TRAZODONE HCL [Concomitant]
     Active Substance: TRAZODONE HYDROCHLORIDE
  14. ALBUTEROL SULFATE [Concomitant]
     Active Substance: ALBUTEROL SULFATE
     Dosage: HYDROFLUOROALKANE
  15. CYCLOSPORINE [Concomitant]
     Active Substance: CYCLOSPORINE
  16. DILTIAZEM [Concomitant]
     Active Substance: DILTIAZEM
     Dosage: FOR 12 HOURS
  17. LACTULOSE [Concomitant]
     Active Substance: LACTULOSE
     Dosage: 10 G / 15 ML
  18. GABAPENTIN [Concomitant]
     Active Substance: GABAPENTIN
  19. MAGNESIUM CITRATE [Concomitant]
     Active Substance: MAGNESIUM CITRATE
  20. BACITRACIN ZINC\POLYMYXIN B SULFATE [Concomitant]
     Active Substance: BACITRACIN ZINC\POLYMYXIN B SULFATE
  21. HYPOCHLOROUS ACID [Concomitant]
     Active Substance: HYPOCHLOROUS ACID
  22. SENNA [Concomitant]
     Active Substance: SENNA LEAF\SENNOSIDES\SENNOSIDES A AND B
  23. DOCUSATE SODIUM [Concomitant]
     Active Substance: DOCUSATE SODIUM

REACTIONS (5)
  - Death [Fatal]
  - Eye pain [Unknown]
  - Facial pain [Unknown]
  - Ocular hyperaemia [Unknown]
  - Eye swelling [Unknown]

NARRATIVE: CASE EVENT DATE: 20230501
